FAERS Safety Report 14425817 (Version 1)
Quarter: 2018Q1

REPORT INFORMATION
  Report Type: Report from Study
  Country: DE (occurrence: DE)
  Receive Date: 20180123
  Receipt Date: 20180123
  Transmission Date: 20180509
  Serious: Yes (Death, Hospitalization)
  Sender: FDA-Public Use
  Company Number: PHHO2014DE004551

PATIENT
  Age: 63 Year
  Sex: Female
  Weight: 52.3 kg

DRUGS (9)
  1. EVEROLIMUS. [Suspect]
     Active Substance: EVEROLIMUS
     Dosage: 10 MG, QD (D1-D28)
     Route: 048
     Dates: start: 20140402, end: 20140416
  2. COMPARATOR PACLITAXEL [Suspect]
     Active Substance: PACLITAXEL
     Dosage: 80 MG/M2, (DAY 1, DAY 8 AND DAY 15)
     Route: 042
     Dates: start: 20140502, end: 20140516
  3. COMPARATOR PACLITAXEL [Suspect]
     Active Substance: PACLITAXEL
     Dosage: 80 MG/M2, (DAY 1, DAY 8 AND DAY 15)
     Route: 042
     Dates: start: 20140402, end: 20140409
  4. DEXAMETHASONE. [Concomitant]
     Active Substance: DEXAMETHASONE
     Indication: PRODUCT USED FOR UNKNOWN INDICATION
     Route: 065
     Dates: start: 20140226
  5. EVEROLIMUS. [Suspect]
     Active Substance: EVEROLIMUS
     Indication: GASTRIC CANCER
     Dosage: 10 MG, QD (D1-D28)
     Route: 048
     Dates: start: 20140226, end: 20140326
  6. RANITIC [Concomitant]
     Active Substance: RANITIDINE HYDROCHLORIDE
     Route: 065
     Dates: start: 20140226
  7. CETIRIZIN [Concomitant]
     Active Substance: CETIRIZINE HYDROCHLORIDE
     Indication: PRODUCT USED FOR UNKNOWN INDICATION
     Route: 065
     Dates: start: 20140226
  8. EVEROLIMUS. [Suspect]
     Active Substance: EVEROLIMUS
     Dosage: 10 MG, QD (D1-D28)
     Route: 048
     Dates: start: 20140502, end: 20140528
  9. COMPARATOR PACLITAXEL [Suspect]
     Active Substance: PACLITAXEL
     Indication: GASTRIC CANCER
     Dosage: 80 MG/M2, (DAY 1, DAY 8 AND DAY 15)
     Route: 042
     Dates: start: 20140226, end: 20140313

REACTIONS (3)
  - Infection [Recovered/Resolved]
  - Pneumonia [Recovered/Resolved]
  - Sepsis [Fatal]

NARRATIVE: CASE EVENT DATE: 20140326
